FAERS Safety Report 19856007 (Version 1)
Quarter: 2021Q3

REPORT INFORMATION
  Report Type: Spontaneous
  Country: IN (occurrence: IN)
  Receive Date: 20210920
  Receipt Date: 20210920
  Transmission Date: 20211014
  Serious: Yes (Death, Hospitalization)
  Sender: FDA-Public Use
  Company Number: IN-SA-2021SA305536

PATIENT
  Age: 2 Year
  Sex: Male

DRUGS (1)
  1. MYOZYME [Suspect]
     Active Substance: ALGLUCOSIDASE ALFA
     Indication: GLYCOGEN STORAGE DISEASE TYPE II
     Dosage: UNK
     Route: 065
     Dates: start: 2020

REACTIONS (3)
  - Nasopharyngitis [Fatal]
  - Dyspnoea [Fatal]
  - Cough [Fatal]

NARRATIVE: CASE EVENT DATE: 2021
